FAERS Safety Report 16766246 (Version 4)
Quarter: 2025Q2

REPORT INFORMATION
  Report Type: Spontaneous
  Country: US (occurrence: US)
  Receive Date: 20190903
  Receipt Date: 20250428
  Transmission Date: 20250716
  Serious: Yes (Hospitalization, Disabling, Other)
  Sender: TORRENT PHARMA INC.
  Company Number: US-TORRENT-00008865

PATIENT
  Age: 74 Year
  Sex: Female
  Weight: 102 kg

DRUGS (8)
  1. HYDROCHLOROTHIAZIDE\LOSARTAN [Suspect]
     Active Substance: HYDROCHLOROTHIAZIDE\LOSARTAN
     Indication: Hypertension
     Dosage: 1 TABLET A DAY
     Dates: start: 2013
  2. AMLODIPINE [Concomitant]
     Active Substance: AMLODIPINE BESYLATE
     Indication: Hypertension
  3. ATORVASTATIN [Concomitant]
     Active Substance: ATORVASTATIN
     Indication: Dyslipidaemia
     Dosage: TWICE A WEEK
  4. ELIQUIS [Concomitant]
     Active Substance: APIXABAN
     Indication: Thrombosis
     Dosage: 5 MG TWICE A DAY
  5. LEVOTHYROXINE [Concomitant]
     Active Substance: LEVOTHYROXINE
     Indication: Hypothyroidism
     Dosage: 75 MCG ONE TABLET A DAY
  6. TRAMADOL [Concomitant]
     Active Substance: TRAMADOL
     Indication: Product used for unknown indication
  7. TYLENOL [Concomitant]
     Active Substance: ACETAMINOPHEN
     Indication: Arthritis
  8. VALSARTAN [Concomitant]
     Active Substance: VALSARTAN
     Indication: Product used for unknown indication

REACTIONS (26)
  - Pollakiuria [Not Recovered/Not Resolved]
  - Abdominal pain upper [Not Recovered/Not Resolved]
  - Urinary tract infection [Not Recovered/Not Resolved]
  - Dizziness [Not Recovered/Not Resolved]
  - Nephrolithiasis [Not Recovered/Not Resolved]
  - Sepsis [Not Recovered/Not Resolved]
  - Pulmonary thrombosis [Not Recovered/Not Resolved]
  - Atrial fibrillation [Unknown]
  - Illness [Unknown]
  - Organ failure [Unknown]
  - Oropharyngeal pain [Unknown]
  - Breast pain [Unknown]
  - Abdominal distension [Unknown]
  - Vulvovaginal pruritus [Unknown]
  - Asthenia [Unknown]
  - Memory impairment [Unknown]
  - Nausea [Unknown]
  - Pyrexia [Unknown]
  - Balance disorder [Unknown]
  - Weight decreased [Unknown]
  - Walking aid user [Not Recovered/Not Resolved]
  - Blood urine present [Unknown]
  - Gait inability [Unknown]
  - Decreased appetite [Unknown]
  - Coma [Unknown]
  - Musculoskeletal stiffness [Unknown]

NARRATIVE: CASE EVENT DATE: 20170101
